FAERS Safety Report 5572875-4 (Version None)
Quarter: 2007Q4

REPORT INFORMATION
  Report Type: 
  Country: None (occurrence: None)
  Receive Date: 20071223
  Receipt Date: 20071220
  Transmission Date: 20080405
  Serious: Yes (Other)
  Sender: FDA-Public Use
  Company Number: PHNU2007DE03335

PATIENT
  Sex: Male

DRUGS (1)
  1. DIOVAN HCT [Suspect]
     Route: 065

REACTIONS (6)
  - DIZZINESS [None]
  - MUSCLE SPASMS [None]
  - PALPITATIONS [None]
  - PANCREATIC ENZYMES DECREASED [None]
  - PANCREATIC INSUFFICIENCY [None]
  - PRURITUS [None]
